FAERS Safety Report 25326925 (Version 1)
Quarter: 2025Q2

REPORT INFORMATION
  Report Type: Spontaneous
  Country: GB (occurrence: GB)
  Receive Date: 20250517
  Receipt Date: 20250517
  Transmission Date: 20250717
  Serious: Yes (Other)
  Sender: ELI LILLY AND COMPANY
  Company Number: None

PATIENT
  Age: 47 Year
  Sex: Female

DRUGS (2)
  1. MOUNJARO [Interacting]
     Active Substance: TIRZEPATIDE
     Indication: Product used for unknown indication
     Route: 065
     Dates: start: 20250428
  2. CARBAMAZEPINE [Interacting]
     Active Substance: CARBAMAZEPINE
     Indication: Product used for unknown indication
     Route: 065

REACTIONS (7)
  - Partial seizures [Unknown]
  - Headache [Unknown]
  - Aura [Unknown]
  - Disorientation [Unknown]
  - Impaired gastric emptying [Unknown]
  - Nausea [Unknown]
  - Drug interaction [Unknown]

NARRATIVE: CASE EVENT DATE: 20250429
